FAERS Safety Report 5538263-1 (Version None)
Quarter: 2007Q4

REPORT INFORMATION
  Report Type: 
  Country: None (occurrence: None)
  Receive Date: 20071123
  Receipt Date: 20070904
  Transmission Date: 20080405
  Serious: Yes (Hospitalization)
  Sender: FDA-Public Use
  Company Number: US-JNJFOC-20070803775

PATIENT
  Age: 49 Year
  Sex: Male
  Weight: 79 kg

DRUGS (3)
  1. LEVAQUIN [Suspect]
     Indication: INFECTION
     Dosage: 500 MG, ORAL
     Route: 048
     Dates: start: 20070815, end: 20070815
  2. LEVAQUIN [Suspect]
     Indication: PNEUMONIA
     Dosage: 500 MG, ORAL
     Route: 048
     Dates: start: 20070815, end: 20070815
  3. ROCEPHIN (CEFTRIAXONE SODIUM) UNSPECIFIED [Concomitant]

REACTIONS (1)
  - ANAPHYLACTIC SHOCK [None]
